FAERS Safety Report 9628491 (Version 1)
Quarter: 2013Q4

REPORT INFORMATION
  Report Type: Spontaneous
  Country: US (occurrence: US)
  Receive Date: 20131017
  Receipt Date: 20131017
  Transmission Date: 20140711
  Serious: No
  Sender: FDA-Public Use
  Company Number: US-PFIZER INC-2013293922

PATIENT
  Age: 18 Month
  Sex: Male

DRUGS (1)
  1. CHILDREN^S ADVIL [Suspect]
     Indication: ANALGESIC THERAPY
     Dosage: UNK
     Dates: start: 201310

REACTIONS (2)
  - Drug administered to patient of inappropriate age [Unknown]
  - Bowel movement irregularity [Unknown]
